FAERS Safety Report 19747452 (Version 1)
Quarter: 2021Q3

REPORT INFORMATION
  Report Type: Spontaneous
  Country: US (occurrence: US)
  Receive Date: 20210825
  Receipt Date: 20210825
  Transmission Date: 20211014
  Serious: Yes (Hospitalization, Other)
  Sender: FDA-Public Use
  Company Number: US-FERRINGPH-2021FE05263

PATIENT
  Age: 36 Year
  Sex: Male

DRUGS (13)
  1. DESMOPRESSIN [Suspect]
     Active Substance: DESMOPRESSIN
     Dosage: UNK
  2. DESMOPRESSIN [Suspect]
     Active Substance: DESMOPRESSIN
     Dosage: UNK
     Route: 065
     Dates: start: 2012, end: 20180618
  3. LEXAPRO [Concomitant]
     Active Substance: ESCITALOPRAM OXALATE
     Indication: PRODUCT USED FOR UNKNOWN INDICATION
     Dosage: 20 MG, QAM
     Route: 048
     Dates: start: 200703, end: 20070623
  4. VALIUM [Concomitant]
     Active Substance: DIAZEPAM
     Dosage: 2 MG, DAILY AT 8AM, 4PM + 8PM
     Route: 048
     Dates: start: 20070411, end: 20070623
  5. VISTARIL [Concomitant]
     Active Substance: HYDROXYZINE PAMOATE
     Indication: AGITATION
     Dosage: 50 MG, Q 6 HRS AS NEEDED
     Route: 048
  6. NORTRIPTYLINE [Concomitant]
     Active Substance: NORTRIPTYLINE
     Indication: PRODUCT USED FOR UNKNOWN INDICATION
     Dosage: 50 MG, AT BEDTIME
     Route: 048
     Dates: start: 20070515, end: 2007
  7. VALIUM [Concomitant]
     Active Substance: DIAZEPAM
     Indication: PRODUCT USED FOR UNKNOWN INDICATION
     Dosage: 5 MG, AT BEDTIME
     Route: 048
  8. DILTIAZEM. [Concomitant]
     Active Substance: DILTIAZEM
     Dosage: 120 MG, AT 8AM
     Dates: start: 20070330, end: 20070623
  9. DESMOPRESSIN [Suspect]
     Active Substance: DESMOPRESSIN
     Indication: PRODUCT USED FOR UNKNOWN INDICATION
     Dosage: 1 SPAY EACH NOSTRIL DAILY AT 9PM
     Route: 045
     Dates: start: 20070412, end: 20070525
  10. DILTIAZEM. [Concomitant]
     Active Substance: DILTIAZEM
     Indication: PRODUCT USED FOR UNKNOWN INDICATION
     Dosage: 120 MG, 2 TIMES DAILY
     Route: 048
  11. CLOZARIL [Concomitant]
     Active Substance: CLOZAPINE
     Indication: PRODUCT USED FOR UNKNOWN INDICATION
     Dosage: 200MG QAM, 400MG QHS
     Route: 048
     Dates: start: 20070428, end: 20070623
  12. OXYBUTYNIN. [Concomitant]
     Active Substance: OXYBUTYNIN CHLORIDE
     Indication: PRODUCT USED FOR UNKNOWN INDICATION
     Dosage: 5 MG, DAILY AT 9PM
     Route: 048
     Dates: start: 20070330
  13. HALOPERIDOL. [Concomitant]
     Active Substance: HALOPERIDOL
     Indication: PRODUCT USED FOR UNKNOWN INDICATION
     Dosage: 5 MG, DAILY AT 8PM
     Route: 048
     Dates: start: 20070507, end: 200706

REACTIONS (13)
  - Hyponatraemia [Unknown]
  - Coma [Unknown]
  - Skin laceration [Unknown]
  - Traumatic haematoma [Unknown]
  - Delirium [Unknown]
  - Diabetes mellitus [Unknown]
  - Hyponatraemic seizure [Unknown]
  - Respiratory distress [Recovered/Resolved]
  - Brain injury [Unknown]
  - Neck injury [Unknown]
  - Gait inability [Unknown]
  - Fall [Unknown]
  - Back injury [Unknown]

NARRATIVE: CASE EVENT DATE: 20070616
